FAERS Safety Report 7138885-0 (Version None)
Quarter: 2010Q4

REPORT INFORMATION
  Report Type: 
  Country: None (occurrence: None)
  Receive Date: 20101206
  Receipt Date: 20101129
  Transmission Date: 20110411
  Serious: Yes (Life-Threatening)
  Sender: FDA-Public Use
  Company Number: JP-BRISTOL-MYERS SQUIBB COMPANY-15341696

PATIENT
  Age: 57 Year
  Sex: Female
  Weight: 58 kg

DRUGS (17)
  1. ORENCIA [Suspect]
     Indication: RHEUMATOID ARTHRITIS
     Route: 041
     Dates: start: 20101010, end: 20101014
  2. PREDOHAN [Concomitant]
     Indication: RHEUMATOID ARTHRITIS
     Dosage: 11JAN6:29:5MG,30MAY7:12NOV7:4MG,13NOV7:30OCT8:3MG,31OCT8:9MAR9:2.5MG,10MAR9:21DEC9:2MG,22DEC9:1MG
     Route: 048
     Dates: start: 20060111
  3. BUCILLAMINE [Concomitant]
     Dates: start: 20100101
  4. ACTEMRA [Concomitant]
     Dosage: 1 DF= 400MG/58KG
  5. LOXONIN [Concomitant]
     Indication: RHEUMATOID ARTHRITIS
  6. MOBIC [Concomitant]
     Indication: RHEUMATOID ARTHRITIS
  7. CIBENOL [Concomitant]
  8. AMLODIPINE [Concomitant]
  9. ALFAROL [Concomitant]
  10. BLOPRESS [Concomitant]
  11. TAKEPRON [Concomitant]
  12. MAGMITT [Concomitant]
  13. COMELIAN [Concomitant]
  14. GASLON N [Concomitant]
  15. FOSAMAC [Concomitant]
  16. ALLEGRA [Concomitant]
  17. ONON [Concomitant]

REACTIONS (2)
  - SHOCK [None]
  - URTICARIA [None]
